FAERS Safety Report 15083635 (Version 1)
Quarter: 2018Q2

REPORT INFORMATION
  Report Type: Spontaneous
  Country: SK (occurrence: SK)
  Receive Date: 20180628
  Receipt Date: 20180628
  Transmission Date: 20180711
  Serious: Yes (Hospitalization)
  Sender: FDA-Public Use
  Company Number: SK-JNJFOC-20180632710

PATIENT
  Age: 75 Year
  Sex: Female
  Weight: 92 kg

DRUGS (9)
  1. AMIODARONE [Concomitant]
     Active Substance: AMIODARONE
     Dosage: DOSAGE: 100 MG, 1-0-0
     Route: 048
  2. XARELTO [Suspect]
     Active Substance: RIVAROXABAN
     Indication: ATRIAL FIBRILLATION
     Route: 048
  3. ESCITALOPRAM [Concomitant]
     Active Substance: ESCITALOPRAM OXALATE
     Dosage: DOSAGE: 20 MG, 10 MG: 1-1-0
     Route: 048
  4. VASOCARDIN [Concomitant]
     Active Substance: METOPROLOL
     Dosage: DOSAGE TEXT: 150 MG, LONG TERM, 100 MG: 1-0-1/2.
     Route: 048
  5. DIGOXIN. [Concomitant]
     Active Substance: DIGOXIN
     Route: 048
  6. PANTOPRAZOLE SODIUM. [Concomitant]
     Active Substance: PANTOPRAZOLE SODIUM
     Dosage: DOSAGE: 40 MG, 1-0-0
     Route: 048
  7. SPITOMIN [Concomitant]
     Route: 048
  8. ZOPICLON [Concomitant]
     Active Substance: ZOPICLONE
     Route: 048
  9. TRITAZIDE [Concomitant]
     Active Substance: HYDROCHLOROTHIAZIDE\RAMIPRIL
     Route: 048

REACTIONS (2)
  - Microcytic anaemia [Unknown]
  - Hypochromic anaemia [Unknown]

NARRATIVE: CASE EVENT DATE: 20180423
